FAERS Safety Report 8863136 (Version 2)
Quarter: 2013Q1

REPORT INFORMATION
  Report Type: Spontaneous
  Country: NO (occurrence: NO)
  Receive Date: 20121026
  Receipt Date: 20130122
  Transmission Date: 20140127
  Serious: Yes (Life-Threatening)
  Sender: FDA-Public Use
  Company Number: PHHY2012NO095569

PATIENT
  Sex: Male

DRUGS (1)
  1. RITALIN [Suspect]
     Indication: ATTENTION DEFICIT/HYPERACTIVITY DISORDER
     Dosage: UNK
     Dates: start: 20120416

REACTIONS (4)
  - Self-injurious ideation [Recovered/Resolved]
  - Self injurious behaviour [Recovered/Resolved]
  - Depressive symptom [Recovered/Resolved]
  - Suicidal ideation [Recovered/Resolved]
